FAERS Safety Report 21190727 (Version 3)
Quarter: 2022Q3

REPORT INFORMATION
  Report Type: Report from Study
  Country: IT (occurrence: IT)
  Receive Date: 20220809
  Receipt Date: 20220914
  Transmission Date: 20221027
  Serious: Yes (Other)
  Sender: FDA-Public Use
  Company Number: IT-AMGEN-ITANI2022135419

PATIENT
  Age: 83 Year
  Sex: Female

DRUGS (3)
  1. SOTORASIB [Suspect]
     Active Substance: SOTORASIB
     Indication: Non-small cell lung cancer
     Dosage: 720 MILLIGRAM, QD, 6 CAPS/DAY
     Route: 065
     Dates: start: 20210826
  2. SOTORASIB [Suspect]
     Active Substance: SOTORASIB
     Dosage: UNK (120CPS 120MG)
     Route: 065
  3. SOTORASIB [Suspect]
     Active Substance: SOTORASIB
     Dosage: UNK (120CPS 120MG)
     Route: 065

REACTIONS (1)
  - Non-small cell lung cancer [Not Recovered/Not Resolved]

NARRATIVE: CASE EVENT DATE: 20220506
